FAERS Safety Report 7005769-8 (Version None)
Quarter: 2010Q3

REPORT INFORMATION
  Report Type: 
  Country: None (occurrence: None)
  Receive Date: 20100921
  Receipt Date: 20100910
  Transmission Date: 20110219
  Serious: Yes (Other)
  Sender: FDA-Public Use
  Company Number: FR-ELI_LILLY_AND_COMPANY-FR201009003210

PATIENT
  Sex: Female

DRUGS (1)
  1. UMULINE [Suspect]
     Indication: DIABETES MELLITUS
     Dosage: UNK, 2/D
     Route: 058

REACTIONS (1)
  - RENAL DISORDER [None]
